FAERS Safety Report 7037622-8 (Version None)
Quarter: 2010Q4

REPORT INFORMATION
  Report Type: 
  Country: None (occurrence: None)
  Receive Date: 20101011
  Receipt Date: 20101003
  Transmission Date: 20110411
  Serious: Yes (Other)
  Sender: FDA-Public Use
  Company Number: PHHY2010BR66544

PATIENT
  Sex: Female

DRUGS (1)
  1. PARLODEL [Suspect]
     Route: 048

REACTIONS (1)
  - NEOPLASM MALIGNANT [None]
